FAERS Safety Report 6047902-0 (Version None)
Quarter: 2009Q1

REPORT INFORMATION
  Report Type: 
  Country: None (occurrence: None)
  Receive Date: 20090123
  Receipt Date: 20090116
  Transmission Date: 20090719
  Serious: Yes (Hospitalization)
  Sender: FDA-Public Use
  Company Number: US-BIOGENIDEC-2008BI026752

PATIENT
  Sex: Female

DRUGS (1)
  1. AVONEX [Suspect]
     Indication: MULTIPLE SCLEROSIS
     Route: 030
     Dates: start: 19980101, end: 20070101

REACTIONS (4)
  - ARTHRITIS [None]
  - ARTHRITIS INFECTIVE [None]
  - SPINAL COLUMN STENOSIS [None]
  - UNEQUAL LIMB LENGTH [None]
